FAERS Safety Report 8996824 (Version 1)
Quarter: 2013Q1

REPORT INFORMATION
  Report Type: Spontaneous
  Country: US (occurrence: US)
  Receive Date: 20130104
  Receipt Date: 20130104
  Transmission Date: 20140127
  Serious: Yes (Hospitalization)
  Sender: FDA-Public Use
  Company Number: US-PFIZER INC-2012334389

PATIENT
  Age: 59 Year
  Sex: Female
  Weight: 102 kg

DRUGS (2)
  1. GEODON [Suspect]
     Indication: SCHIZOAFFECTIVE DISORDER
     Dosage: UNK, 1X/DAY
     Route: 048
     Dates: start: 201209, end: 2012
  2. XANAX [Concomitant]
     Dosage: UNK

REACTIONS (4)
  - Pneumonia [Unknown]
  - Pyrexia [Unknown]
  - Apparent death [Unknown]
  - Accidental overdose [Unknown]
